FAERS Safety Report 21488096 (Version 3)
Quarter: 2023Q2

REPORT INFORMATION
  Report Type: Report from Study
  Country: US (occurrence: US)
  Receive Date: 20221020
  Receipt Date: 20230630
  Transmission Date: 20230721
  Serious: No
  Sender: FDA-Public Use
  Company Number: US-ACADIA PHARMACEUTICALS INC.-ACA-2022-PIM-003287

PATIENT
  Age: 84 Year
  Sex: Male

DRUGS (12)
  1. NUPLAZID [Suspect]
     Active Substance: PIMAVANSERIN TARTRATE
     Indication: Parkinson^s disease
     Dosage: 34 MILLIGRAM, QD
     Route: 048
     Dates: start: 202005
  2. ELIQUIS [Concomitant]
     Active Substance: APIXABAN
  3. LORAZEPAM [Concomitant]
     Active Substance: LORAZEPAM
  4. CARVEDILOL [Concomitant]
     Active Substance: CARVEDILOL
  5. CARBIDOPA LEVODOPA [Concomitant]
     Active Substance: CARBIDOPA\LEVODOPA
  6. PREDNISONE [Concomitant]
     Active Substance: PREDNISONE
  7. SPIRONOLACTONE [Concomitant]
     Active Substance: SPIRONOLACTONE
  8. GABAPENTIN [Concomitant]
     Active Substance: GABAPENTIN
  9. TRAMADOL [Concomitant]
     Active Substance: TRAMADOL
  10. ZIPSOR [Concomitant]
     Active Substance: DICLOFENAC POTASSIUM
  11. SILENOR [Concomitant]
     Active Substance: DOXEPIN HYDROCHLORIDE
  12. RYTARY [Concomitant]
     Active Substance: CARBIDOPA\LEVODOPA

REACTIONS (2)
  - COVID-19 [Recovered/Resolved]
  - Abnormal behaviour [Unknown]

NARRATIVE: CASE EVENT DATE: 20220812
